FAERS Safety Report 5233990-8 (Version None)
Quarter: 2007Q1

REPORT INFORMATION
  Report Type: 
  Country: None (occurrence: None)
  Receive Date: 20061204
  Receipt Date: 20060808
  Transmission Date: 20070707
  Serious: No
  Sender: FDA-Public Use
  Company Number: 2006-BP-07133BP

PATIENT
  Age: 80 Year
  Sex: Male

DRUGS (21)
  1. SPIRIVA [Suspect]
     Indication: CHRONIC OBSTRUCTIVE PULMONARY DISEASE
     Dosage: SEE IMAGE
     Route: 055
     Dates: start: 20051101
  2. SPIRIVA [Suspect]
     Indication: EMPHYSEMA
     Dosage: SEE IMAGE
     Route: 055
     Dates: start: 20051101
  3. SPIRIVA [Suspect]
     Indication: CHRONIC OBSTRUCTIVE PULMONARY DISEASE
     Dosage: SEE IMAGE
     Route: 055
     Dates: start: 20060601
  4. SPIRIVA [Suspect]
     Indication: EMPHYSEMA
     Dosage: SEE IMAGE
     Route: 055
     Dates: start: 20060601
  5. ALBUTEROL [Concomitant]
  6. NORVASC [Concomitant]
  7. GLIPIZIDE [Concomitant]
  8. NOVOLIN R [Concomitant]
  9. PLAVIX [Concomitant]
  10. ASPIRIN [Concomitant]
  11. LASIX [Concomitant]
  12. PREVACID [Concomitant]
  13. VICODIN [Concomitant]
  14. NITROSTAT [Concomitant]
  15. IMDUR [Concomitant]
  16. TRILEPTAL [Concomitant]
  17. FLOMAX (MORNIFLUMATE) [Concomitant]
  18. TOPROL-XL [Concomitant]
  19. XANAX [Concomitant]
  20. LIPITOR [Concomitant]
  21. ARICEPT [Concomitant]

REACTIONS (2)
  - DRUG INEFFECTIVE [None]
  - LUNG NEOPLASM MALIGNANT [None]
